FAERS Safety Report 16393267 (Version 2)
Quarter: 2019Q2

REPORT INFORMATION
  Report Type: Spontaneous
  Country: US (occurrence: US)
  Receive Date: 20190605
  Receipt Date: 20190611
  Transmission Date: 20190711
  Serious: Yes (Hospitalization, Other)
  Sender: FDA-Public Use
  Company Number: US-SA-2019SA151326

PATIENT
  Age: 66 Year
  Sex: Male

DRUGS (6)
  1. METHOTREXATE. [Interacting]
     Active Substance: METHOTREXATE
     Indication: MANTLE CELL LYMPHOMA
     Dosage: 3.5 MG/M2, OVER TWO HOURS, INFUSION
     Route: 042
     Dates: start: 20171013
  2. METHOTREXATE. [Interacting]
     Active Substance: METHOTREXATE
     Dosage: 3.5 MG/M2 OVER 2 HOURS, INFUSION
     Route: 042
     Dates: start: 20171116
  3. RITUXIMAB. [Concomitant]
     Active Substance: RITUXIMAB
     Indication: MANTLE CELL LYMPHOMA
     Dosage: UNK
     Dates: start: 20171013
  4. PRIMAQUINE [Suspect]
     Active Substance: PRIMAQUINE PHOSPHATE
     Indication: PNEUMOCYSTIS JIROVECII PNEUMONIA
     Dosage: 30 MG, QD
     Route: 048
     Dates: start: 20171110
  5. LEUCOVORINE [Concomitant]
     Active Substance: LEUCOVORIN
     Indication: MANTLE CELL LYMPHOMA
     Dosage: UNK
     Dates: start: 20171013
  6. METHOTREXATE. [Interacting]
     Active Substance: METHOTREXATE
     Dosage: 3.5 MG/M2 OVER 2 HOURS, INFUSION
     Route: 042
     Dates: start: 20171229

REACTIONS (4)
  - Pneumocystis jirovecii pneumonia [Unknown]
  - Drug interaction [Unknown]
  - Off label use [Unknown]
  - Drug clearance increased [Recovered/Resolved]

NARRATIVE: CASE EVENT DATE: 201711
